FAERS Safety Report 9026586 (Version 1)
Quarter: 2013Q1

REPORT INFORMATION
  Report Type: Spontaneous
  Country: US (occurrence: None)
  Receive Date: 20130107
  Receipt Date: 20130225
  Transmission Date: 20140127
  Serious: Yes (Other)
  Sender: FDA-Public Use
  Company Number: ACO_33576_2012

PATIENT
  Age: 48 Year
  Sex: Female

DRUGS (9)
  1. AMPYRA (DALFAMPRIDINE) TABLET, 10 MG [Suspect]
     Indication: PRODUCT USED FOR UNKNOWN INDICATION
     Route: 048
  2. WELLBUTRIN (BUPROPION HYDROCHLORIDE) [Concomitant]
  3. MULTIVITAMIN (VITAMINS NOS) [Concomitant]
  4. GILENYA (FINGOLIMOD HYDROCHLORIDE) [Concomitant]
  5. NUVIGIL (ARMODAFINIL) [Concomitant]
  6. VITAMIN B12 (CYANOCOBALAMIN) [Concomitant]
  7. VITAMIN D3 (COLECALCIFEROL) [Concomitant]
  8. CALCIUM (CALCIUM) [Concomitant]
  9. FISH OIL (FISH OIL) [Concomitant]

REACTIONS (5)
  - Lung neoplasm malignant [None]
  - Fall [None]
  - Gait disturbance [None]
  - Asthenia [None]
  - Confusional state [None]
